FAERS Safety Report 18897036 (Version 1)
Quarter: 2021Q1

REPORT INFORMATION
  Report Type: Spontaneous
  Country: DE (occurrence: DE)
  Receive Date: 20210216
  Receipt Date: 20210216
  Transmission Date: 20210420
  Serious: No
  Sender: FDA-Public Use
  Company Number: DE-ALKEM LABORATORIES LIMITED-DE-ALKEM-2020-07949

PATIENT
  Age: 85 Year
  Sex: Female

DRUGS (1)
  1. PREGABALIN. [Suspect]
     Active Substance: PREGABALIN
     Indication: SPINAL PAIN
     Dosage: 25 MILLIGRAM
     Route: 065
     Dates: start: 201909

REACTIONS (5)
  - Dry mouth [Unknown]
  - Dizziness [Unknown]
  - Insomnia [Unknown]
  - Nausea [Unknown]
  - Rash [Unknown]
